FAERS Safety Report 7978409-9 (Version None)
Quarter: 2011Q4

REPORT INFORMATION
  Report Type: 
  Country: None (occurrence: None)
  Receive Date: 20111209
  Receipt Date: 20111130
  Transmission Date: 20120403
  Serious: Yes (Hospitalization)
  Sender: FDA-Public Use
  Company Number: MPS1-1000603

PATIENT
  Age: 7 Year
  Sex: Female
  Weight: 17.9 kg

DRUGS (1)
  1. ALDURAZYME [Suspect]
     Indication: MUCOPOLYSACCHARIDOSIS I
     Dosage: 11.6 MG, QW, INTRAVENOUS
     Route: 042
     Dates: start: 20071101

REACTIONS (1)
  - ARTHROPATHY [None]
